FAERS Safety Report 9114313 (Version 1)
Quarter: 2013Q1

REPORT INFORMATION
  Report Type: Spontaneous
  Country: SE (occurrence: SE)
  Receive Date: 20130208
  Receipt Date: 20130208
  Transmission Date: 20140127
  Serious: Yes (Hospitalization, Other)
  Sender: FDA-Public Use
  Company Number: PHHY2013SE007797

PATIENT
  Age: 68 Year
  Sex: Male

DRUGS (6)
  1. TEGRETOL [Suspect]
     Indication: TRIGEMINAL NEURALGIA
     Dosage: 2 DF, ONCE PER DAY
     Route: 048
     Dates: start: 20060918, end: 201211
  2. TEGRETOL [Suspect]
     Dosage: 3 DF, (4TH DAY AT A DOSE OF 1+1+1)
     Route: 048
  3. TEGRETOL [Suspect]
     Dosage: 4 DF, (7TH-9TH DAY AT A DOSE OF 2+1+1)
     Route: 048
  4. TEGRETOL [Suspect]
     Dosage: 5 DF, (10TH-12TH DAY AT A DOSE OF 2+1+2)
     Route: 048
  5. TEGRETOL [Suspect]
     Dosage: 6 DF, (13TH DAY AT A DOSE OF 2+2+2 TABLETS)
     Route: 048
  6. TEGRETOL [Suspect]
     Dosage: UNK UKN, (DECREASED DOSE)
     Route: 048

REACTIONS (12)
  - Pneumonia mycoplasmal [Unknown]
  - Sepsis [Unknown]
  - Candida sepsis [Unknown]
  - Staphylococcal sepsis [Unknown]
  - Pulmonary thrombosis [Unknown]
  - Thrombosis [Unknown]
  - Cardiac failure [Unknown]
  - Fluid retention [Unknown]
  - Oedema peripheral [Unknown]
  - Cardiac murmur [Unknown]
  - Cardiomegaly [Unknown]
  - Hypotension [Unknown]
